FAERS Safety Report 9059643 (Version 1)
Quarter: 2013Q1

REPORT INFORMATION
  Report Type: Spontaneous
  Country: US (occurrence: None)
  Receive Date: 20130205
  Receipt Date: 20130205
  Transmission Date: 20140127
  Serious: Yes (Life-Threatening, Hospitalization, Disabling)
  Sender: FDA-Public Use
  Company Number: None

PATIENT
  Age: 36 Year
  Sex: Male
  Weight: 68.04 kg

DRUGS (1)
  1. PHENERGAN [Suspect]
     Indication: VOMITING
     Dosage: 12-25 ML 10 SECONDS IV
     Dates: start: 20110307, end: 20110307

REACTIONS (9)
  - Burning sensation [None]
  - Eye irritation [None]
  - Convulsion [None]
  - Cerebrovascular accident [None]
  - Nervous system disorder [None]
  - Unevaluable event [None]
  - Pain [None]
  - Incorrect drug administration rate [None]
  - Burning sensation [None]
